FAERS Safety Report 7180026-8 (Version None)
Quarter: 2010Q4

REPORT INFORMATION
  Report Type: 
  Country: None (occurrence: None)
  Receive Date: 20101221
  Receipt Date: 20101209
  Transmission Date: 20110411
  Serious: Yes (Hospitalization)
  Sender: FDA-Public Use
  Company Number: US-ACTELION-A-NJ2010-42548

PATIENT

DRUGS (1)
  1. BOSENTAN TABLET UNKNOWN US MG [Suspect]
     Indication: PULMONARY ARTERIAL HYPERTENSION
     Dosage: UNK
     Route: 048
     Dates: start: 20060215

REACTIONS (5)
  - BENIGN BREAST NEOPLASM [None]
  - BREAST LUMP REMOVAL [None]
  - BRONCHITIS [None]
  - PYREXIA [None]
  - RALES [None]
